FAERS Safety Report 9032380 (Version 2)
Quarter: 2013Q1

REPORT INFORMATION
  Report Type: Report from Study
  Country: CA (occurrence: CA)
  Receive Date: 20130125
  Receipt Date: 20130301
  Transmission Date: 20140127
  Serious: Yes (Death, Hospitalization)
  Sender: FDA-Public Use
  Company Number: CA-GENZYME-CAMP-1002701

PATIENT
  Age: 59 Year
  Sex: Male

DRUGS (10)
  1. CAMPATH [Suspect]
     Indication: T-CELL LYMPHOMA
     Dosage: 30 MG, 3X/W
     Route: 058
     Dates: start: 20121207, end: 20121214
  2. LACTULOSE [Concomitant]
     Indication: HEPATIC CIRRHOSIS
     Dosage: 15 ML, BID
     Route: 065
  3. FUROSEMIDE [Concomitant]
     Indication: HEPATIC CIRRHOSIS
     Dosage: 40 MG, UNK
     Route: 048
  4. SPIRONOLACTONE [Concomitant]
     Indication: HEPATIC CIRRHOSIS
     Dosage: 15 MG, UNK
     Route: 048
  5. BISOPROLOL [Concomitant]
     Indication: HYPERTENSION
     Dosage: 5 MG, UNK
     Route: 048
  6. CITALOPRAM [Concomitant]
     Indication: DEPRESSION
     Dosage: 15 MG, UNK
     Route: 048
  7. VALACICLOVIR [Concomitant]
     Indication: PROPHYLAXIS
     Dosage: 500 MG, BID
     Route: 048
  8. SEPTRA [Concomitant]
     Indication: PROPHYLAXIS
     Dosage: 1 DF, 3X/W
     Route: 048
  9. ALLOPURINOL [Concomitant]
     Indication: PROPHYLAXIS
     Dosage: 200 MG, UNK
     Route: 048
  10. OXAZEPAM [Concomitant]
     Indication: INSOMNIA
     Dosage: 15 MG, UNK
     Route: 048

REACTIONS (4)
  - Multi-organ failure [Fatal]
  - Hepatic cirrhosis [Fatal]
  - Disseminated intravascular coagulation [Fatal]
  - Hepatic encephalopathy [Fatal]
